FAERS Safety Report 21183569 (Version 2)
Quarter: 2025Q2

REPORT INFORMATION
  Report Type: Report from Study
  Country: IT (occurrence: IT)
  Receive Date: 20220808
  Receipt Date: 20250618
  Transmission Date: 20250716
  Serious: Yes (Other)
  Sender: AUROBINDO
  Company Number: IT-SUN PHARMACEUTICAL INDUSTRIES LTD-2022R1-344988

PATIENT
  Age: 69 Year
  Sex: Male

DRUGS (6)
  1. LAMIVUDINE [Suspect]
     Active Substance: LAMIVUDINE
     Indication: Prophylaxis
     Route: 065
  2. IBRUTINIB [Suspect]
     Active Substance: IBRUTINIB
     Indication: Prophylaxis
     Dosage: 280 MILLIGRAM, ONCE A DAY
     Route: 065
  3. ENTECAVIR [Suspect]
     Active Substance: ENTECAVIR
     Indication: Prophylaxis
     Dosage: 0.5 MILLIGRAM, ONCE A DAY
     Route: 065
  4. RITUXIMAB [Concomitant]
     Active Substance: RITUXIMAB
     Indication: Prophylaxis
     Route: 065
  5. Fludarabine;Rituximab [Concomitant]
     Indication: Prophylaxis
     Route: 065
  6. VENETOCLAX [Concomitant]
     Active Substance: VENETOCLAX
     Indication: Prophylaxis
     Route: 065

REACTIONS (1)
  - Disease recurrence [Unknown]
